FAERS Safety Report 6370702-9 (Version None)
Quarter: 2009Q3

REPORT INFORMATION
  Report Type: 
  Country: None (occurrence: None)
  Receive Date: 20090923
  Receipt Date: 20070508
  Transmission Date: 20100115
  Serious: Yes (Other)
  Sender: FDA-Public Use
  Company Number: US-ASTRAZENECA-2006UW25393

PATIENT
  Age: 17672 Day
  Sex: Female
  Weight: 101.2 kg

DRUGS (15)
  1. SEROQUEL [Suspect]
     Indication: DEPRESSION
     Route: 048
     Dates: start: 20020220
  2. SEROQUEL [Suspect]
     Indication: SLEEP DISORDER
     Route: 048
     Dates: start: 20020220
  3. SEROQUEL [Suspect]
     Indication: MOOD SWINGS
     Route: 048
     Dates: start: 20020220
  4. ZYPREXA [Concomitant]
  5. GLUCOPHAGE [Concomitant]
  6. AMARYL [Concomitant]
  7. DILANTIN [Concomitant]
  8. LIPITOR [Concomitant]
  9. LISINOPRIL [Concomitant]
  10. METOPROLOL TARTRATE [Concomitant]
  11. NORVASC [Concomitant]
  12. ACTOS [Concomitant]
  13. ACCUPRIL [Concomitant]
  14. CELEXA [Concomitant]
  15. FLUOXETINE HCL [Concomitant]

REACTIONS (8)
  - ASTHENIA [None]
  - BLOOD GLUCOSE INCREASED [None]
  - FATIGUE [None]
  - HYPERGLYCAEMIA [None]
  - MYALGIA [None]
  - PAIN [None]
  - SUICIDAL IDEATION [None]
  - TYPE 2 DIABETES MELLITUS [None]
